FAERS Safety Report 6735975-9 (Version None)
Quarter: 2010Q2

REPORT INFORMATION
  Report Type: 
  Country: None (occurrence: None)
  Receive Date: 20100521
  Receipt Date: 20100511
  Transmission Date: 20101027
  Serious: Yes (Other)
  Sender: FDA-Public Use
  Company Number: D0067640A

PATIENT
  Age: 64 Year
  Sex: Female

DRUGS (1)
  1. SUMATRIPTAN HEXAL [Suspect]
     Indication: MIGRAINE
     Dosage: 100MG UNKNOWN
     Route: 048

REACTIONS (4)
  - CYANOSIS [None]
  - DYSPNOEA [None]
  - EYE PAIN [None]
  - MIGRAINE [None]
